FAERS Safety Report 7883518-9 (Version None)
Quarter: 2011Q4

REPORT INFORMATION
  Report Type: 
  Country: None (occurrence: None)
  Receive Date: 20111102
  Receipt Date: 20111025
  Transmission Date: 20120403
  Serious: Yes (Hospitalization, Other)
  Sender: FDA-Public Use
  Company Number: JP-ASTELLAS-2011JP007727

PATIENT
  Sex: Female
  Weight: 54.8 kg

DRUGS (10)
  1. PROGRAF [Suspect]
     Dosage: 1.1 MG, BID
     Route: 048
     Dates: start: 20101215, end: 20101201
  2. PROGRAF [Suspect]
     Dosage: 1.1 MG, BID
     Route: 048
     Dates: start: 20110112, end: 20110116
  3. PROGRAF [Suspect]
     Dosage: 2.0 MG, UNKNOWN/D
     Route: 048
     Dates: start: 20110117, end: 20110117
  4. PREDNISOLONE [Concomitant]
     Indication: PROPHYLAXIS AGAINST GRAFT VERSUS HOST DISEASE
     Dosage: 10 MG, UID/QD
     Route: 048
     Dates: start: 20101207, end: 20110304
  5. DIFLUCAN [Concomitant]
     Indication: INFECTION PROPHYLAXIS
     Dosage: 100 MG, UNKNOWN/D
     Route: 048
     Dates: start: 20101001, end: 20110210
  6. OMEPRAZOLE [Concomitant]
     Indication: PROPHYLAXIS AGAINST GASTROINTESTINAL ULCER
     Dosage: 10 MG, UID/QD
     Route: 048
     Dates: start: 20101202, end: 20111001
  7. LEVOFLOXACIN [Concomitant]
     Indication: INFECTION PROPHYLAXIS
     Dosage: 500 MG, UID/QD
     Route: 048
     Dates: start: 20101001, end: 20110301
  8. PROGRAF [Suspect]
     Dosage: 1.4 MG, BID
     Route: 048
     Dates: start: 20101201, end: 20110111
  9. SULFAMETHOXAZOLE [Concomitant]
     Indication: INFECTION PROPHYLAXIS
     Dosage: UNK
     Route: 065
     Dates: start: 20101001, end: 20111001
  10. PROGRAF [Suspect]
     Indication: PROPHYLAXIS AGAINST GRAFT VERSUS HOST DISEASE
     Dosage: UNK
     Route: 041
     Dates: start: 20101027, end: 20101214

REACTIONS (3)
  - DRUG INEFFECTIVE [None]
  - RENAL FAILURE ACUTE [None]
  - GRAFT VERSUS HOST DISEASE [None]
